FAERS Safety Report 5485630-0 (Version None)
Quarter: 2007Q4

REPORT INFORMATION
  Report Type: 
  Country: None (occurrence: None)
  Receive Date: 20071015
  Receipt Date: 20071004
  Transmission Date: 20080405
  Serious: Yes (Life-Threatening)
  Sender: FDA-Public Use
  Company Number: IT-ELI_LILLY_AND_COMPANY-IT200707002895

PATIENT
  Sex: Male

DRUGS (4)
  1. ALIMTA [Suspect]
     Indication: NON-SMALL CELL LUNG CANCER METASTATIC
     Dosage: 1000 MG, UNKNOWN
     Route: 042
     Dates: start: 20070520
  2. TARCEVA [Concomitant]
     Dosage: UNK, UNKNOWN
     Route: 065
     Dates: start: 20060731, end: 20070811
  3. CORTICOSTEROIDS [Concomitant]
     Dosage: UNK, UNKNOWN
     Route: 065
  4. THERAPEUTIC RADIOPHARMACEUTICALS [Concomitant]
     Dosage: UNK, UNKNOWN
     Route: 065
     Dates: start: 20060731, end: 20060811

REACTIONS (1)
  - MYOCARDIAL INFARCTION [None]
